FAERS Safety Report 5869585-2 (Version None)
Quarter: 2008Q3

REPORT INFORMATION
  Report Type: 
  Country: None (occurrence: None)
  Receive Date: 20080902
  Receipt Date: 20080815
  Transmission Date: 20090109
  Serious: Yes (Other)
  Sender: FDA-Public Use
  Company Number: DSA_62247_2008

PATIENT
  Sex: Female

DRUGS (5)
  1. DIASTAT [Suspect]
     Indication: CONVULSION
     Dosage: 10 MG OVER 2 MINUTES AS NEED. RECTAL
     Route: 054
     Dates: start: 20080722
  2. DEPAKOTE [Concomitant]
  3. LAMOTRIGINE [Concomitant]
  4. PEPCID [Concomitant]
  5. TRILEPTAL [Concomitant]

REACTIONS (5)
  - CONVULSION [None]
  - DEVICE MALFUNCTION [None]
  - DRUG ADMINISTRATION ERROR [None]
  - DRUG INEFFECTIVE [None]
  - PHARMACEUTICAL PRODUCT COMPLAINT [None]
